FAERS Safety Report 24428328 (Version 2)
Quarter: 2024Q4

REPORT INFORMATION
  Report Type: Report from Study
  Country: US (occurrence: US)
  Receive Date: 20241011
  Receipt Date: 20241216
  Transmission Date: 20250115
  Serious: Yes (Other)
  Sender: NOVARTIS
  Company Number: US-002147023-NVSC2024US198748

PATIENT
  Sex: Female

DRUGS (1)
  1. KESIMPTA [Suspect]
     Active Substance: OFATUMUMAB
     Indication: Multiple sclerosis
     Dosage: UNK
     Route: 065

REACTIONS (6)
  - Choking [Unknown]
  - Migraine [Unknown]
  - Oropharyngeal pain [Unknown]
  - Cough [Unknown]
  - Pharyngeal swelling [Unknown]
  - Oral herpes [Unknown]
